FAERS Safety Report 19574092 (Version 1)
Quarter: 2021Q3

REPORT INFORMATION
  Report Type: Spontaneous
  Country: US (occurrence: US)
  Receive Date: 20210718
  Receipt Date: 20210718
  Transmission Date: 20211014
  Serious: No
  Sender: FDA-Public Use
  Company Number: US-AMGEN-USASP2021107478

PATIENT
  Age: 64 Year
  Sex: Female

DRUGS (1)
  1. REPATHA [Suspect]
     Active Substance: EVOLOCUMAB
     Indication: PRODUCT USED FOR UNKNOWN INDICATION
     Dosage: 140 MILLIGRAM, Q2WK
     Route: 065

REACTIONS (20)
  - Anaemia [Unknown]
  - Diplopia [Unknown]
  - Joint swelling [Unknown]
  - Pruritus [Unknown]
  - Abdominal pain upper [Unknown]
  - Chills [Unknown]
  - Fatigue [Unknown]
  - Migraine [Unknown]
  - Weight increased [Unknown]
  - Blood pressure abnormal [Unknown]
  - Dizziness [Unknown]
  - Back pain [Unknown]
  - Eye pain [Unknown]
  - Urticaria [Not Recovered/Not Resolved]
  - Dyspnoea [Unknown]
  - Arthritis [Unknown]
  - Myalgia [Unknown]
  - Asthenia [Unknown]
  - Dry mouth [Unknown]
  - Nausea [Unknown]

NARRATIVE: CASE EVENT DATE: 2021
